FAERS Safety Report 9851859 (Version 2)
Quarter: 2015Q1

REPORT INFORMATION
  Report Type: Report from Study
  Country: US (occurrence: US)
  Receive Date: 20131226
  Receipt Date: 20150122
  Transmission Date: 20150721
  Serious: Yes (Disabling, Other)
  Sender: FDA-Public Use
  Company Number: PHEH2013US000482

PATIENT
  Age: 56 Year
  Sex: Female

DRUGS (2)
  1. GILENYA [Suspect]
     Active Substance: FINGOLIMOD HYDROCHLORIDE
     Indication: MULTIPLE SCLEROSIS
     Dosage: 0.5 MG, QD
     Route: 048
     Dates: start: 20120618, end: 20141022
  2. GILENYA [Suspect]
     Active Substance: FINGOLIMOD HYDROCHLORIDE
     Dosage: 0.5 MG, QD
     Route: 048
     Dates: end: 201411

REACTIONS (19)
  - Fatigue [Recovered/Resolved]
  - Dysphemia [Unknown]
  - Dyskinesia [Unknown]
  - Chest pain [Unknown]
  - Tremor [Recovered/Resolved]
  - Headache [Recovered/Resolved]
  - Speech disorder [Unknown]
  - Memory impairment [Unknown]
  - Sensory loss [Unknown]
  - Movement disorder [Unknown]
  - Vision blurred [Unknown]
  - Migraine with aura [Unknown]
  - Incoherent [Unknown]
  - Blood pressure increased [Unknown]
  - Fall [Unknown]
  - Hepatic enzyme increased [Unknown]
  - Dyspnoea [Unknown]
  - Alanine aminotransferase increased [Unknown]
  - Aspartate aminotransferase increased [Unknown]

NARRATIVE: CASE EVENT DATE: 20121114
